FAERS Safety Report 8756408 (Version 12)
Quarter: 2023Q2

REPORT INFORMATION
  Report Type: Report from Study
  Country: JP (occurrence: JP)
  Receive Date: 20120910
  Receipt Date: 20230526
  Transmission Date: 20230721
  Serious: Yes (Hospitalization, Other)
  Sender: FDA-Public Use
  Company Number: JP-MERCK-1103USA01264

PATIENT
  Age: 36 Year
  Sex: Male

DRUGS (19)
  1. ISENTRESS [Suspect]
     Active Substance: RALTEGRAVIR POTASSIUM
     Indication: HIV infection
     Dosage: 800 MG, UNK
     Route: 048
     Dates: start: 20091229, end: 20161111
  2. INTELENCE [Suspect]
     Active Substance: ETRAVIRINE
     Indication: HIV infection
     Dosage: 400 MG, UNK
     Route: 048
     Dates: start: 20091229, end: 20161111
  3. EPZICOM [Suspect]
     Active Substance: ABACAVIR SULFATE\LAMIVUDINE
     Indication: HIV infection
     Dosage: 1 DOSAGE FORM
     Route: 048
     Dates: start: 20091229, end: 20161111
  4. EPIVIR [Suspect]
     Active Substance: LAMIVUDINE
     Indication: HIV infection
     Dosage: 150 MILLIGRAM, BID
     Route: 048
     Dates: start: 19990112, end: 20091228
  5. KALETRA [Suspect]
     Active Substance: LOPINAVIR\RITONAVIR
     Indication: HIV infection
     Dosage: 6 DF, UNK
     Route: 048
     Dates: end: 20061031
  6. KALETRA [Suspect]
     Active Substance: LOPINAVIR\RITONAVIR
     Dosage: 4 DF, UNK
     Route: 048
     Dates: start: 20061101, end: 20091228
  7. VIREAD [Suspect]
     Active Substance: TENOFOVIR DISOPROXIL FUMARATE
     Indication: HIV infection
     Dosage: 300 MILLIGRAM
     Route: 048
     Dates: end: 20091228
  8. TRIUMEQ [Suspect]
     Active Substance: ABACAVIR SULFATE\DOLUTEGRAVIR SODIUM\LAMIVUDINE
     Indication: HIV infection
     Dosage: 1 MILLIGRAM
     Route: 048
     Dates: start: 20180401
  9. EDURANT [Suspect]
     Active Substance: RILPIVIRINE HYDROCHLORIDE
     Indication: HIV infection
     Dosage: 25 MILLIGRAM
     Route: 065
     Dates: start: 20180401, end: 20200402
  10. ZERIT [Concomitant]
     Active Substance: STAVUDINE
     Indication: HIV infection
     Dosage: 30 MILLIGRAM, BID
     Route: 048
     Dates: start: 19990112, end: 20041117
  11. VIRACEPT [Concomitant]
     Active Substance: NELFINAVIR MESYLATE
     Indication: HIV infection
     Dosage: 750 MILLIGRAM, TID
     Route: 048
     Dates: start: 19990112, end: 20050112
  12. URSO [Concomitant]
     Active Substance: URSODIOL
     Indication: Liver disorder
     Dosage: 600 MILLIGRAM, TID
     Route: 048
  13. PEGASYS [Concomitant]
     Active Substance: PEGINTERFERON ALFA-2A
     Indication: Hepatitis
     Dosage: 45 MICROGRAM, QW
     Route: 058
     Dates: end: 201003
  14. PEGASYS [Concomitant]
     Active Substance: PEGINTERFERON ALFA-2A
     Dosage: 36 MICROGRAM, QOW
     Route: 058
     Dates: end: 20120528
  15. PEGASYS [Concomitant]
     Active Substance: PEGINTERFERON ALFA-2A
     Dosage: 45 MICROGRAM, QOW
     Route: 058
     Dates: start: 20120529, end: 20120920
  16. PEGASYS [Concomitant]
     Active Substance: PEGINTERFERON ALFA-2A
     Dosage: 36 MICROGRAM, QOW
     Route: 058
     Dates: start: 20120921
  17. CROSS EIGHT M [Concomitant]
     Active Substance: ANTIHEMOPHILIC FACTOR HUMAN
     Indication: Factor VIII deficiency
     Dosage: UNK
     Route: 042
     Dates: end: 20111220
  18. CROSS EIGHT M [Concomitant]
     Active Substance: ANTIHEMOPHILIC FACTOR HUMAN
     Dosage: UNK
     Route: 042
     Dates: start: 20120224
  19. CROSS EIGHT M [Concomitant]
     Active Substance: ANTIHEMOPHILIC FACTOR HUMAN
     Dosage: UNK
     Route: 042
     Dates: start: 20180401

REACTIONS (4)
  - Haemorrhagic diathesis [Recovered/Resolved]
  - Hypertension [Not Recovered/Not Resolved]
  - Hyperuricaemia [Not Recovered/Not Resolved]
  - Liver disorder [Not Recovered/Not Resolved]

NARRATIVE: CASE EVENT DATE: 20000321
